FAERS Safety Report 4473975-2 (Version None)
Quarter: 2004Q4

REPORT INFORMATION
  Report Type: 
  Country: None (occurrence: None)
  Receive Date: 20041013
  Receipt Date: 20041013
  Transmission Date: 20050328
  Serious: Yes (Hospitalization)
  Sender: FDA-Public Use
  Company Number: None

PATIENT
  Age: 72 Year
  Sex: Female

DRUGS (1)
  1. LISINOPRIL [Suspect]
     Dosage: 10 MG PO Q DAY
     Route: 048

REACTIONS (7)
  - ANGIONEUROTIC OEDEMA [None]
  - DROOLING [None]
  - DYSKINESIA [None]
  - DYSPHAGIA [None]
  - DYSPNOEA [None]
  - SALIVA DISCOLOURATION [None]
  - SWOLLEN TONGUE [None]
